FAERS Safety Report 10552979 (Version 4)
Quarter: 2015Q2

REPORT INFORMATION
  Report Type: Spontaneous
  Country: US (occurrence: US)
  Receive Date: 20141029
  Receipt Date: 20150518
  Transmission Date: 20150821
  Serious: Yes (Hospitalization, Other)
  Sender: FDA-Public Use
  Company Number: US-PFIZER INC-2014298355

PATIENT
  Age: 53 Year
  Sex: Female

DRUGS (2)
  1. TRAMADOL [Concomitant]
     Active Substance: TRAMADOL
     Dosage: UNK
  2. LYRICA [Suspect]
     Active Substance: PREGABALIN
     Indication: PAIN IN EXTREMITY
     Dosage: 150 MG, 2X/DAY

REACTIONS (9)
  - Arthralgia [Recovered/Resolved]
  - Somnolence [Recovered/Resolved]
  - Back disorder [Unknown]
  - Swelling [Unknown]
  - Paraesthesia [Unknown]
  - Nerve injury [Unknown]
  - Gait disturbance [Unknown]
  - Drug ineffective [Recovered/Resolved]
  - Intervertebral disc protrusion [Unknown]
